FAERS Safety Report 6861562-8 (Version None)
Quarter: 2010Q3

REPORT INFORMATION
  Report Type: 
  Country: None (occurrence: None)
  Receive Date: 20100721
  Receipt Date: 20100714
  Transmission Date: 20110219
  Serious: Yes (Other)
  Sender: FDA-Public Use
  Company Number: US-BAYER-201028046NA

PATIENT
  Age: 33 Year
  Sex: Female

DRUGS (2)
  1. AVELOX [Suspect]
     Indication: SINUSITIS
     Dosage: 2 PILLS
     Route: 048
     Dates: start: 20100710, end: 20100711
  2. XANAX [Concomitant]

REACTIONS (3)
  - HYPERHIDROSIS [None]
  - THINKING ABNORMAL [None]
  - TREMOR [None]
